FAERS Safety Report 22332190 (Version 2)
Quarter: 2023Q2

REPORT INFORMATION
  Report Type: Spontaneous
  Country: FR (occurrence: FR)
  Receive Date: 20230517
  Receipt Date: 20230614
  Transmission Date: 20230722
  Serious: Yes (Hospitalization)
  Sender: FDA-Public Use
  Company Number: None

PATIENT
  Age: 44 Year
  Sex: Female

DRUGS (11)
  1. EPIRUBICIN [Suspect]
     Active Substance: EPIRUBICIN
     Indication: Breast cancer
     Dosage: 186 MILLIGRAM,1 CYCLICAL (186 MG X3 CYCLES)
     Route: 042
     Dates: start: 20190829, end: 20191010
  2. FLUOROURACIL [Suspect]
     Active Substance: FLUOROURACIL
     Indication: Breast cancer
     Dosage: 930 MILLIGRAM,1 CYCLICAL (930 MG X 3 CYCLES)
     Route: 042
     Dates: start: 20190829, end: 20191010
  3. CYCLOPHOSPHAMIDE [Suspect]
     Active Substance: CYCLOPHOSPHAMIDE
     Indication: Breast cancer
     Dosage: 930 MILLIGRAM,1 CYCLICAL,(930 MG X 3 CYCLES)
     Route: 042
     Dates: start: 20190829, end: 20191010
  4. TAXOTERE [Suspect]
     Active Substance: DOCETAXEL
     Indication: Breast cancer
     Dosage: 183 MILLIGRAM,1 CYCLICAL (183 MG X 3 CYCLES)
     Route: 042
     Dates: start: 20190627, end: 20190808
  5. HERCEPTIN [Suspect]
     Active Substance: TRASTUZUMAB
     Indication: Breast cancer
     Dosage: 680 MILLIGRAM,1 CYCLICAL(680 MG X 3 CYCLES)
     Route: 042
     Dates: start: 20190627, end: 20190808
  6. KADCYLA [Suspect]
     Active Substance: ADO-TRASTUZUMAB EMTANSINE
     Indication: Breast cancer
     Dosage: 288 MILLIGRAM,1 CYCLICAL (288 MG X 14 CYCLES)
     Route: 042
     Dates: start: 20191206, end: 20200914
  7. GLICLAZIDE [Concomitant]
     Active Substance: GLICLAZIDE
     Dosage: UNK
     Route: 065
  8. LETROZOLE [Concomitant]
     Active Substance: LETROZOLE
     Dosage: UNK
     Route: 065
  9. METFORMIN [Concomitant]
     Active Substance: METFORMIN HYDROCHLORIDE
     Dosage: UNK
     Route: 065
  10. TRULICITY [Concomitant]
     Active Substance: DULAGLUTIDE
     Dosage: UNK
     Route: 065
  11. ANASTROZOLE [Concomitant]
     Active Substance: ANASTROZOLE
     Dosage: UNK
     Route: 065

REACTIONS (1)
  - Pulmonary arterial hypertension [Not Recovered/Not Resolved]

NARRATIVE: CASE EVENT DATE: 20201201
